FAERS Safety Report 11556157 (Version 2)
Quarter: 2015Q3

REPORT INFORMATION
  Report Type: Spontaneous
  Country: US (occurrence: US)
  Receive Date: 20150916
  Receipt Date: 20150916
  Transmission Date: 20151125
  Serious: No
  Sender: FDA-Public Use
  Company Number: US-ELI_LILLY_AND_COMPANY-US200804000739

PATIENT
  Age: 76 Year
  Sex: Female

DRUGS (6)
  1. FORTEO [Suspect]
     Active Substance: TERIPARATIDE
     Indication: OSTEOPOROSIS
     Dosage: UNK, UNK
     Dates: start: 200803
  2. FORTEO [Suspect]
     Active Substance: TERIPARATIDE
  3. CALCIUM [Concomitant]
     Active Substance: CALCIUM
     Dosage: UNK, 2/D
  4. FORTEO [Suspect]
     Active Substance: TERIPARATIDE
  5. OMEPRAZOL [Concomitant]
     Active Substance: OMEPRAZOLE
  6. SYNTHROID [Concomitant]
     Active Substance: LEVOTHYROXINE SODIUM

REACTIONS (8)
  - Nausea [Unknown]
  - Pain in extremity [Recovered/Resolved]
  - Frequent bowel movements [Not Recovered/Not Resolved]
  - Laceration [Recovered/Resolved]
  - Haemorrhage [Recovered/Resolved]
  - Muscle spasms [Not Recovered/Not Resolved]
  - Abnormal faeces [Not Recovered/Not Resolved]
  - Muscle spasms [Recovered/Resolved]

NARRATIVE: CASE EVENT DATE: 2008
